FAERS Safety Report 10903718 (Version 1)
Quarter: 2015Q1

REPORT INFORMATION
  Report Type: Spontaneous
  Country: US (occurrence: US)
  Receive Date: 20150311
  Receipt Date: 20150311
  Transmission Date: 20150721
  Serious: No
  Sender: FDA-Public Use
  Company Number: US-B.I. PHARMACEUTICALS,INC./RIDGEFIELD-2015-BI-10351BP

PATIENT
  Age: 85 Year
  Sex: Female

DRUGS (9)
  1. LISINOPRIL. [Concomitant]
     Active Substance: LISINOPRIL
     Indication: HYPERTENSION
     Dosage: 10 MG
     Route: 048
  2. CLOPIDOGREL [Concomitant]
     Active Substance: CLOPIDOGREL BISULFATE
     Indication: CEREBROVASCULAR ACCIDENT
     Dosage: 75 MG
     Route: 048
  3. ZANTAC [Suspect]
     Active Substance: RANITIDINE HYDROCHLORIDE
     Indication: DYSPEPSIA
     Dosage: 150 MG
     Route: 048
     Dates: start: 20150224, end: 20150225
  4. OSCAL [Concomitant]
     Active Substance: CALCIUM CARBONATE
     Indication: PROPHYLAXIS
     Dosage: 1 ANZ
     Route: 048
  5. OMERPRAZOLE [Concomitant]
     Indication: GASTROINTESTINAL DISORDER
     Dosage: 40 MG
     Route: 048
  6. CENTRUM SILVER [Concomitant]
     Active Substance: VITAMINS
     Indication: PROPHYLAXIS
     Dosage: 1 ANZ
     Route: 048
  7. OCUVITE [Concomitant]
     Active Substance: VITAMINS
     Indication: CATARACT OPERATION
     Route: 065
  8. ZANTAC [Suspect]
     Active Substance: RANITIDINE HYDROCHLORIDE
     Indication: DYSPEPSIA
  9. STOOL SOFTENER [Concomitant]
     Active Substance: DOCUSATE CALCIUM
     Indication: FAECES HARD
     Dosage: 1 ANZ
     Route: 048

REACTIONS (1)
  - Incoherent [Not Recovered/Not Resolved]

NARRATIVE: CASE EVENT DATE: 20150224
